FAERS Safety Report 15311596 (Version 1)
Quarter: 2018Q3

REPORT INFORMATION
  Report Type: Spontaneous
  Country: US (occurrence: US)
  Receive Date: 20180814
  Receipt Date: 20180814
  Transmission Date: 20181010
  Serious: Yes (Life-Threatening, Hospitalization, Disabling)
  Sender: FDA-Public Use
  Company Number: None

PATIENT
  Age: 46 Year
  Sex: Male
  Weight: 64.8 kg

DRUGS (16)
  1. MILRINONE [Concomitant]
     Active Substance: MILRINONE
  2. LORAZEPAM. [Concomitant]
     Active Substance: LORAZEPAM
  3. SENNA [Concomitant]
     Active Substance: SENNA LEAF\SENNOSIDES\SENNOSIDES A AND B
  4. ENTRESTO [Concomitant]
     Active Substance: SACUBITRIL\VALSARTAN
  5. OXYCODONE [Concomitant]
     Active Substance: OXYCODONE
  6. EPLERENONE. [Concomitant]
     Active Substance: EPLERENONE
  7. CARVEDILOL. [Concomitant]
     Active Substance: CARVEDILOL
  8. DOCUSATE SODIUM. [Concomitant]
     Active Substance: DOCUSATE SODIUM
  9. TESTOSTERONE CYPIONATE. [Suspect]
     Active Substance: TESTOSTERONE CYPIONATE
     Indication: BLOOD TESTOSTERONE DECREASED
     Dosage: ?          QUANTITY:1 VIAL;OTHER FREQUENCY:WEEKLY;OTHER ROUTE:INTRAMUSCULAR INJECTION?
  10. TORSEMIDE. [Concomitant]
     Active Substance: TORSEMIDE
  11. SERTRALINE [Concomitant]
     Active Substance: SERTRALINE HYDROCHLORIDE
  12. SEVELAMER [Concomitant]
     Active Substance: SEVELAMER
  13. NO DRUG NAME [Concomitant]
  14. CALCIUM CARBONATGE E?X [Concomitant]
  15. AMIODARONE [Concomitant]
     Active Substance: AMIODARONE
  16. OMEPRAZOLE. [Concomitant]
     Active Substance: OMEPRAZOLE

REACTIONS (16)
  - Pneumonia [None]
  - Abdominal pain upper [None]
  - Oedema peripheral [None]
  - Tricuspid valve incompetence [None]
  - Hypersensitivity [None]
  - Skin disorder [None]
  - Ventricular tachycardia [None]
  - Product use issue [None]
  - Injection site reaction [None]
  - Cardiac failure [None]
  - Abdominal distension [None]
  - Renal failure [None]
  - Mitral valve incompetence [None]
  - Myocardial infarction [None]
  - Dialysis [None]
  - Product contamination physical [None]

NARRATIVE: CASE EVENT DATE: 20180608
